FAERS Safety Report 19476502 (Version 2)
Quarter: 2021Q3

REPORT INFORMATION
  Report Type: Report from Study
  Country: FR (occurrence: FR)
  Receive Date: 20210630
  Receipt Date: 20210713
  Transmission Date: 20211014
  Serious: Yes (Other)
  Sender: FDA-Public Use
  Company Number: FR-GILEAD-2021-0538377

PATIENT
  Age: 25 Year
  Sex: Male
  Weight: 66 kg

DRUGS (1)
  1. EMTRICITABINE;TENOFOVIR DISOPROXIL FUMARATE [Suspect]
     Active Substance: EMTRICITABINE\TENOFOVIR DISOPROXIL FUMARATE
     Indication: PROPHYLAXIS AGAINST HIV INFECTION
     Dosage: 1 DOSAGE FORM, QD
     Route: 065
     Dates: start: 20181006, end: 20190112

REACTIONS (2)
  - Gonorrhoea [Unknown]
  - Acute hepatitis C [Recovered/Resolved]

NARRATIVE: CASE EVENT DATE: 20190108
